FAERS Safety Report 17098771 (Version 2)
Quarter: 2019Q4

REPORT INFORMATION
  Report Type: Spontaneous
  Country: JP (occurrence: JP)
  Receive Date: 20191202
  Receipt Date: 20191230
  Transmission Date: 20200122
  Serious: Yes (Other)
  Sender: FDA-Public Use
  Company Number: JP-AMGEN-JPNSP2019180790

PATIENT
  Age: 71 Year
  Sex: Female
  Weight: 47 kg

DRUGS (5)
  1. ROCALTROL [Concomitant]
     Active Substance: CALCITRIOL
     Indication: THYROID CANCER
     Dosage: 0.5 MILLIGRAM, QD
     Route: 048
     Dates: start: 20101006, end: 20190220
  2. CALCIUM CHLORIDE. [Concomitant]
     Active Substance: CALCIUM CHLORIDE
     Dosage: UNK
     Route: 030
  3. RANMARK [Suspect]
     Active Substance: DENOSUMAB
     Indication: METASTASES TO BONE
     Dosage: 120 MILLIGRAM, Q4WK
     Route: 058
     Dates: start: 20181219, end: 20190220
  4. DENOTAS [Concomitant]
     Active Substance: CALCIUM CARBONATE\CHOLECALCIFEROL\MAGNESIUM CARBONATE
     Dosage: 1220 MILLIGRAM, QD
     Route: 048
  5. THYRADIN [Concomitant]
     Active Substance: LEVOTHYROXINE
     Indication: THYROID CANCER
     Dosage: 75 MICROGRAM
     Route: 048
     Dates: start: 20101215

REACTIONS (2)
  - Blood triglycerides increased [Recovering/Resolving]
  - Hypocalcaemia [Recovering/Resolving]

NARRATIVE: CASE EVENT DATE: 20190319
